FAERS Safety Report 18509895 (Version 2)
Quarter: 2020Q4

REPORT INFORMATION
  Report Type: Report from Study
  Country: DE (occurrence: DE)
  Receive Date: 20201117
  Receipt Date: 20201203
  Transmission Date: 20210114
  Serious: Yes (Hospitalization, Other)
  Sender: FDA-Public Use
  Company Number: DE-BRISTOL-MYERS SQUIBB COMPANY-BMS-2020-094044

PATIENT
  Age: 36 Year
  Sex: Male
  Weight: 90 kg

DRUGS (10)
  1. NIVOLUMAB [Suspect]
     Active Substance: NIVOLUMAB
     Indication: NON-SMALL CELL LUNG CANCER
     Dosage: 240 MILLIGRAM
     Route: 065
     Dates: start: 20201030, end: 20201030
  2. RELVAR [Concomitant]
     Active Substance: FLUTICASONE FUROATE\VILANTEROL TRIFENATATE
     Indication: ASTHMA
     Dosage: 184 MILLIGRAM, QD
     Route: 065
     Dates: start: 20200401
  3. NOVAMINOSULFON [Concomitant]
     Active Substance: METAMIZOLE SODIUM
     Indication: MIGRAINE
     Dosage: 500 MILLIGRAM, PRN
     Route: 065
     Dates: start: 202006
  4. NINTEDANIB [Suspect]
     Active Substance: NINTEDANIB
     Dosage: 400 MILLIGRAM
     Route: 065
     Dates: start: 20201113
  5. PARACODIN [DIHYDROCODEINE] [Concomitant]
     Indication: COUGH
     Dosage: 10 MILLIGRAM, PRN
     Route: 065
     Dates: start: 202006
  6. NINTEDANIB [Suspect]
     Active Substance: NINTEDANIB
     Indication: NON-SMALL CELL LUNG CANCER
     Dosage: 200 MILLIGRAM, BID
     Route: 065
     Dates: start: 20201031, end: 20201103
  7. TORASEMID [Concomitant]
     Active Substance: TORSEMIDE
     Indication: CARDIAC FAILURE
     Dosage: 10 MILLIGRAM, QD
     Route: 065
     Dates: start: 202007
  8. PARACETAMOL [Concomitant]
     Active Substance: ACETAMINOPHEN
     Indication: MIGRAINE
     Dosage: 500MG, PRN
     Route: 065
     Dates: start: 20201023
  9. UNACID PD [SULTAMICILLIN TOSILATE] [Concomitant]
     Active Substance: SULTAMICILLIN TOSYLATE
     Indication: INFECTION
     Dosage: 375 MILLIGRAM, 2-0-2-0
     Route: 065
     Dates: start: 20201106, end: 20201112
  10. KALINOR [POTASSIUM CHLORIDE] [Concomitant]
     Active Substance: POTASSIUM CHLORIDE
     Indication: BLOOD SODIUM DECREASED
     Dosage: UNK
     Route: 065
     Dates: start: 20201105, end: 20201105

REACTIONS (1)
  - Pneumonia [Recovered/Resolved]

NARRATIVE: CASE EVENT DATE: 20201105
